FAERS Safety Report 6756773-6 (Version None)
Quarter: 2010Q2

REPORT INFORMATION
  Report Type: 
  Country: None (occurrence: None)
  Receive Date: 20100604
  Receipt Date: 20100531
  Transmission Date: 20101027
  Serious: Yes (Other)
  Sender: FDA-Public Use
  Company Number: JP-ABBOTT-10P-087-0648467-00

PATIENT
  Age: 74 Year
  Sex: Male

DRUGS (20)
  1. KLARICID [Suspect]
     Indication: RESPIRATORY TRACT INFECTION
     Dates: end: 20090827
  2. KLARICID [Suspect]
     Dates: start: 20090909, end: 20100218
  3. PIRFENIDONE [Suspect]
     Indication: IDIOPATHIC PULMONARY FIBROSIS
     Dates: start: 20090507, end: 20090827
  4. PIRFENIDONE [Suspect]
     Dates: start: 20090909
  5. PIRFENIDONE [Suspect]
     Dates: start: 20090625
  6. PIRFENIDONE [Suspect]
     Dates: start: 20090709, end: 20090827
  7. PIRFENIDONE [Suspect]
     Dates: start: 20090909, end: 20100218
  8. COTRIM [Suspect]
     Indication: DRUG USE FOR UNKNOWN INDICATION
     Dates: end: 20090827
  9. COTRIM [Suspect]
     Dates: start: 20090909, end: 20100218
  10. CODEINE SULFATE [Suspect]
     Indication: IDIOPATHIC PULMONARY FIBROSIS
     Dates: end: 20090827
  11. CODEINE SULFATE [Suspect]
     Dates: start: 20090909, end: 20100218
  12. BONALON [Suspect]
     Indication: PROPHYLAXIS
     Dates: end: 20090827
  13. BONALON [Suspect]
     Dates: start: 20090909, end: 20100218
  14. COTRIM [Concomitant]
  15. MAGLAX [Concomitant]
     Indication: DRUG USE FOR UNKNOWN INDICATION
  16. PURSENNID [Concomitant]
     Indication: DRUG USE FOR UNKNOWN INDICATION
     Dates: start: 20090909
  17. LOXONIN [Concomitant]
     Indication: DRUG USE FOR UNKNOWN INDICATION
  18. GASTER D [Concomitant]
     Indication: DRUG USE FOR UNKNOWN INDICATION
  19. MAGMITT [Concomitant]
     Indication: DRUG USE FOR UNKNOWN INDICATION
     Dates: start: 20090909
  20. FAMOTIDINE [Concomitant]
     Indication: DRUG USE FOR UNKNOWN INDICATION
     Dates: start: 20090909

REACTIONS (4)
  - DECREASED APPETITE [None]
  - DYSGEUSIA [None]
  - RESPIRATORY TRACT INFECTION [None]
  - WEIGHT DECREASED [None]
